FAERS Safety Report 13863747 (Version 2)
Quarter: 2017Q3

REPORT INFORMATION
  Report Type: Report from Study
  Country: VE (occurrence: VE)
  Receive Date: 20170814
  Receipt Date: 20170917
  Transmission Date: 20171127
  Serious: Yes (Death)
  Sender: FDA-Public Use
  Company Number: PHHY2017VE118829

PATIENT
  Age: 73 Year
  Sex: Female

DRUGS (2)
  1. SANDOSTATIN LAR DEPOT [Suspect]
     Active Substance: OCTREOTIDE ACETATE
     Dosage: 20 MG
     Route: 065
  2. SANDOSTATIN LAR DEPOT [Suspect]
     Active Substance: OCTREOTIDE ACETATE
     Indication: GASTROENTEROPANCREATIC NEUROENDOCRINE TUMOUR DISEASE
     Dosage: 40 MG, QMO
     Route: 065
     Dates: start: 20160829

REACTIONS (2)
  - Second primary malignancy [Fatal]
  - Small intestine carcinoma [Fatal]

NARRATIVE: CASE EVENT DATE: 201706
